FAERS Safety Report 19691901 (Version 2)
Quarter: 2021Q3

REPORT INFORMATION
  Report Type: Spontaneous
  Country: US (occurrence: US)
  Receive Date: 20210812
  Receipt Date: 20210915
  Transmission Date: 20211014
  Serious: No
  Sender: FDA-Public Use
  Company Number: US-KARYOPHARM-2021KPT000969

PATIENT

DRUGS (14)
  1. ONDANSETRON [Concomitant]
     Active Substance: ONDANSETRON
  2. SIMVASTATIN. [Concomitant]
     Active Substance: SIMVASTATIN
  3. XPOVIO [Suspect]
     Active Substance: SELINEXOR
     Indication: PLASMA CELL MYELOMA
     Dosage: 80 MG, WEEKLY
     Route: 048
     Dates: start: 20210717
  4. DEXAMETHASONE. [Concomitant]
     Active Substance: DEXAMETHASONE
  5. CITALOPRAM [Concomitant]
     Active Substance: CITALOPRAM HYDROBROMIDE
  6. GLIPIZIDE. [Concomitant]
     Active Substance: GLIPIZIDE
  7. LORAZEPAM. [Concomitant]
     Active Substance: LORAZEPAM
  8. OLANZAPINE. [Concomitant]
     Active Substance: OLANZAPINE
  9. AMLODIPINE [Concomitant]
     Active Substance: AMLODIPINE BESYLATE
  10. ACYCLOVIR [ACICLOVIR] [Concomitant]
     Active Substance: ACYCLOVIR
  11. CARVEDILOL. [Concomitant]
     Active Substance: CARVEDILOL
  12. ALPHA LIPOIC ACID [Concomitant]
     Active Substance: .ALPHA.-LIPOIC ACID
  13. LISINOPRIL. [Concomitant]
     Active Substance: LISINOPRIL
  14. PROCHLORPERAZINE MALEATE. [Concomitant]
     Active Substance: PROCHLORPERAZINE MALEATE

REACTIONS (13)
  - Hypersomnia [Recovering/Resolving]
  - Ageusia [Unknown]
  - Nausea [Unknown]
  - Urinary incontinence [Not Recovered/Not Resolved]
  - Asthenia [Unknown]
  - Dehydration [Unknown]
  - Malaise [Unknown]
  - Dizziness [Unknown]
  - Dry mouth [Not Recovered/Not Resolved]
  - Dysgeusia [Unknown]
  - Fatigue [Not Recovered/Not Resolved]
  - Diarrhoea [Unknown]
  - Anaemia [Unknown]

NARRATIVE: CASE EVENT DATE: 2021
